FAERS Safety Report 13193060 (Version 1)
Quarter: 2017Q1

REPORT INFORMATION
  Report Type: Report from Study
  Country: US (occurrence: US)
  Receive Date: 20170207
  Receipt Date: 20170207
  Transmission Date: 20170428
  Serious: Yes (Other)
  Sender: FDA-Public Use
  Company Number: US-BAXALTA-2017BLT000877

PATIENT
  Sex: Female

DRUGS (1)
  1. IMMUNOGLOBULIN, NORMAL HUMAN [Suspect]
     Active Substance: HUMAN IMMUNOGLOBULIN G
     Indication: IMMUNODEFICIENCY COMMON VARIABLE
     Route: 042

REACTIONS (5)
  - Headache [Unknown]
  - Renal impairment [Unknown]
  - Histoplasmosis [Unknown]
  - Nausea [Unknown]
  - Pyelonephritis [Unknown]
